FAERS Safety Report 9524034 (Version 1)
Quarter: 2013Q3

REPORT INFORMATION
  Report Type: Spontaneous
  Country: US (occurrence: US)
  Receive Date: 20130916
  Receipt Date: 20130916
  Transmission Date: 20140515
  Serious: Yes (Other)
  Sender: FDA-Public Use
  Company Number: US-BAYER-2013-110305

PATIENT
  Age: 69 Year
  Sex: Female

DRUGS (2)
  1. ULTRAVIST INJECTION [Suspect]
     Indication: COMPUTERISED TOMOGRAM ABDOMEN
     Dosage: 125 MG, ONCE
     Route: 042
     Dates: start: 20130905, end: 20130905
  2. ULTRAVIST INJECTION [Suspect]
     Indication: FLANK PAIN

REACTIONS (3)
  - Vomiting [Unknown]
  - Chest discomfort [Unknown]
  - Blood pressure increased [Unknown]
